FAERS Safety Report 15543205 (Version 2)
Quarter: 2019Q1

REPORT INFORMATION
  Report Type: Spontaneous
  Country: ES (occurrence: ES)
  Receive Date: 20181023
  Receipt Date: 20190320
  Transmission Date: 20190417
  Serious: No
  Sender: FDA-Public Use
  Company Number: ES-PFM-2018-12693

PATIENT
  Age: 59 Year
  Sex: Female

DRUGS (2)
  1. CISPLATIN. [Suspect]
     Active Substance: CISPLATIN
     Indication: PRODUCT USED FOR UNKNOWN INDICATION
     Dosage: 80 MG/M2, D1 CYCLICAL
     Route: 065
     Dates: start: 20171113, end: 201804
  2. VINORELBINE TARTRATE. [Suspect]
     Active Substance: VINORELBINE TARTRATE
     Dosage: 25 MG/M2, CYCLICAL(8/21).
     Route: 065
     Dates: start: 20171113, end: 201804

REACTIONS (1)
  - No adverse event [Recovered/Resolved]
